FAERS Safety Report 22812557 (Version 3)
Quarter: 2024Q4

REPORT INFORMATION
  Report Type: Spontaneous
  Country: HU (occurrence: HU)
  Receive Date: 20230811
  Receipt Date: 20241105
  Transmission Date: 20250115
  Serious: Yes (Other)
  Sender: CELLTRION
  Company Number: HU-CELLTRION INC.-2023HU015800

PATIENT

DRUGS (7)
  1. RITUXIMAB [Suspect]
     Active Substance: RITUXIMAB
     Indication: Acquired haemophilia
     Dosage: DAYS 1, 8, 15, AND 22.
     Route: 065
  2. RITUXIMAB [Suspect]
     Active Substance: RITUXIMAB
     Indication: Immunosuppression
  3. DEXAMETHASONE [Suspect]
     Active Substance: DEXAMETHASONE
     Indication: Acquired haemophilia
     Dosage: ON DAYS 1, 8, 15, AND 22,
     Route: 065
  4. DEXAMETHASONE [Suspect]
     Active Substance: DEXAMETHASONE
     Indication: Immunosuppression
  5. CYCLOPHOSPHAMIDE [Suspect]
     Active Substance: CYCLOPHOSPHAMIDE
     Indication: Acquired haemophilia
     Dosage: ON DAYS 1 AND 22
     Route: 065
  6. CYCLOPHOSPHAMIDE [Suspect]
     Active Substance: CYCLOPHOSPHAMIDE
     Indication: Immunosuppression
  7. FEIBA [Suspect]
     Active Substance: ANTI-INHIBITOR COAGULANT COMPLEX
     Indication: Factor VIII deficiency

REACTIONS (3)
  - Atrial thrombosis [Unknown]
  - Drug effective for unapproved indication [Unknown]
  - Off label use [Unknown]
